FAERS Safety Report 11777466 (Version 1)
Quarter: 2015Q4

REPORT INFORMATION
  Report Type: Spontaneous
  Country: US (occurrence: US)
  Receive Date: 20151125
  Receipt Date: 20151125
  Transmission Date: 20160304
  Serious: No
  Sender: FDA-Public Use
  Company Number: US-RAPTOR PHARMACEUTICALS, INC.-RAP-001109-2015

PATIENT
  Age: 4 Year
  Sex: Female

DRUGS (4)
  1. SODIUM CHLORIDE. [Concomitant]
     Active Substance: SODIUM CHLORIDE
     Indication: PRODUCT USED FOR UNKNOWN INDICATION
     Dosage: 2.5 ML, BID
     Route: 065
     Dates: start: 201301
  2. POLYCITRA [Concomitant]
     Indication: PRODUCT USED FOR UNKNOWN INDICATION
     Dosage: 18 ML, QID
     Dates: start: 201301
  3. PROCYSBI DELAYED-RELEASE [Suspect]
     Active Substance: CYSTEAMINE BITARTRATE
     Indication: CYSTINOSIS
     Dosage: 400 MG, SINGLE
     Dates: start: 20150903, end: 20150903
  4. PHOSNAK [Concomitant]
     Indication: PRODUCT USED FOR UNKNOWN INDICATION
     Dosage: 1.5 DF, QD
     Route: 065
     Dates: start: 201301

REACTIONS (1)
  - Device occlusion [Recovered/Resolved]

NARRATIVE: CASE EVENT DATE: 20150903
